FAERS Safety Report 19304941 (Version 1)
Quarter: 2021Q2

REPORT INFORMATION
  Report Type: Spontaneous
  Country: KR (occurrence: KR)
  Receive Date: 20210525
  Receipt Date: 20210525
  Transmission Date: 20210717
  Serious: Yes (Other)
  Sender: FDA-Public Use
  Company Number: KR-GLAXOSMITHKLINE-KR2021APC107431

PATIENT
  Age: 58 Year
  Sex: Male

DRUGS (2)
  1. ZEFFIX [Suspect]
     Active Substance: LAMIVUDINE
     Indication: PRODUCT USED FOR UNKNOWN INDICATION
     Dosage: 100 MG
     Route: 048
     Dates: start: 20040615, end: 20060526
  2. HEPSERA [Suspect]
     Active Substance: ADEFOVIR DIPIVOXIL
     Indication: PRODUCT USED FOR UNKNOWN INDICATION
     Dosage: 10 MG
     Route: 048
     Dates: start: 20060527

REACTIONS (6)
  - Osteomalacia [Unknown]
  - Blood pH decreased [Unknown]
  - Bone disorder [Unknown]
  - Urine calcium increased [Unknown]
  - Drug resistance [Unknown]
  - Blood alkaline phosphatase increased [Unknown]
